FAERS Safety Report 13588605 (Version 2)
Quarter: 2017Q2

REPORT INFORMATION
  Report Type: Spontaneous
  Country: IN (occurrence: IN)
  Receive Date: 20170529
  Receipt Date: 20170530
  Transmission Date: 20170830
  Serious: Yes (Other)
  Sender: FDA-Public Use
  Company Number: IN-SUN PHARMACEUTICAL INDUSTRIES LTD-2017R1-141694

PATIENT
  Age: 33 Year
  Sex: Male

DRUGS (2)
  1. PYRAZINAMIDE. [Suspect]
     Active Substance: PYRAZINAMIDE
     Indication: TUBERCULOSIS
     Route: 065
  2. ISONIAZID. [Suspect]
     Active Substance: ISONIAZID
     Indication: TUBERCULOSIS
     Route: 065

REACTIONS (2)
  - Chylothorax [Unknown]
  - Paradoxical drug reaction [Unknown]
